FAERS Safety Report 7665522-9 (Version None)
Quarter: 2011Q3

REPORT INFORMATION
  Report Type: 
  Country: None (occurrence: None)
  Receive Date: 20110806
  Receipt Date: 20110314
  Transmission Date: 20111222
  Serious: No
  Sender: FDA-Public Use
  Company Number: US-ABBOTT-11P-163-0711994-00

PATIENT
  Sex: Male
  Weight: 102.15 kg

DRUGS (7)
  1. TRAZODONE HCL [Concomitant]
     Indication: INSOMNIA
  2. LIPITOR [Concomitant]
     Indication: BLOOD CHOLESTEROL INCREASED
  3. VICODIN [Concomitant]
     Indication: HEADACHE
  4. NIASPAN [Suspect]
     Indication: BLOOD CHOLESTEROL INCREASED
     Dates: start: 20110301
  5. ATENOLOL [Concomitant]
     Indication: CARDIAC DISORDER
  6. ASPIRIN [Concomitant]
     Indication: PRODUCT USED FOR UNKNOWN INDICATION
  7. FISH OIL [Concomitant]
     Indication: SUPPLEMENTATION THERAPY

REACTIONS (3)
  - PAIN IN EXTREMITY [None]
  - ARTHRALGIA [None]
  - HYPOAESTHESIA [None]
